FAERS Safety Report 4309849-7 (Version None)
Quarter: 2004Q1

REPORT INFORMATION
  Report Type: 
  Country: None (occurrence: None)
  Receive Date: 20040227
  Receipt Date: 20040128
  Transmission Date: 20041129
  Serious: No
  Sender: FDA-Public Use
  Company Number: FABR-10455

PATIENT
  Age: 73 Year
  Sex: Female
  Weight: 75.6 kg

DRUGS (8)
  1. FABRAZYME [Suspect]
     Indication: FABRY'S DISEASE
     Dosage: 70 MG Q2WKS IV
     Dates: start: 20030723
  2. HYDROCHLOROTHIAZIDE [Concomitant]
  3. ACCOLATE [Concomitant]
  4. COZAAR [Concomitant]
  5. CLONIDINE [Concomitant]
  6. ZYRTEC [Concomitant]
  7. NEXIUM [Concomitant]
  8. TYLENOL (CAPLET) [Concomitant]

REACTIONS (1)
  - HYPOTENSION [None]
